FAERS Safety Report 21397885 (Version 2)
Quarter: 2022Q4

REPORT INFORMATION
  Report Type: Spontaneous
  Country: FR (occurrence: None)
  Receive Date: 20220930
  Receipt Date: 20221110
  Transmission Date: 20230113
  Serious: Yes (Other)
  Sender: FDA-Public Use
  Company Number: 2022A330028

PATIENT
  Age: 23858 Day
  Sex: Male
  Weight: 105 kg

DRUGS (2)
  1. DAPAGLIFLOZIN [Suspect]
     Active Substance: DAPAGLIFLOZIN
     Route: 048
     Dates: start: 20220915, end: 20220922
  2. ATORVASTATIN [Suspect]
     Active Substance: ATORVASTATIN
     Indication: Dressler^s syndrome
     Dosage: 80.0MG UNKNOWN
     Route: 065
     Dates: start: 2013, end: 20220915

REACTIONS (1)
  - Hepatic cytolysis [Recovered/Resolved]

NARRATIVE: CASE EVENT DATE: 20220921
